FAERS Safety Report 7792597 (Version 2)
Quarter: 2013Q4

REPORT INFORMATION
  Report Type: Spontaneous
  Country: CA (occurrence: CA)
  Receive Date: 20110131
  Receipt Date: 20131118
  Transmission Date: 20140711
  Serious: Yes (Death)
  Sender: FDA-Public Use
  Company Number: CA-ASTRAZENECA-2011SE04483

PATIENT
  Age: 50 Year
  Sex: Female

DRUGS (10)
  1. DIPRIVAN [Suspect]
     Indication: STATUS EPILEPTICUS
     Dosage: 200-300 MG PER HOUR CONTINOUS INFUSION.
     Route: 042
  2. CLOXACILLIN [Concomitant]
     Route: 042
     Dates: start: 20101022, end: 20101025
  3. LEVETIRACETAM [Concomitant]
     Route: 048
     Dates: start: 20101018, end: 20101025
  4. PHENOBARBITAL [Concomitant]
     Route: 042
     Dates: start: 20101006, end: 20101025
  5. PHENYTOIN [Concomitant]
     Route: 042
     Dates: start: 20101003, end: 20101025
  6. TOPIRAMATE [Concomitant]
     Route: 048
     Dates: start: 20101021, end: 20101025
  7. PREDNISONE [Concomitant]
     Route: 048
     Dates: start: 20101003, end: 20101025
  8. LEFLUNOMIDE [Concomitant]
     Route: 048
     Dates: start: 20101019, end: 20101025
  9. METOCLOPRAMIDE [Concomitant]
     Route: 042
     Dates: start: 20101024, end: 20101024
  10. ENOXAPARIN [Concomitant]
     Route: 058
     Dates: start: 20101003, end: 20101024

REACTIONS (11)
  - Status epilepticus [Fatal]
  - Circulatory collapse [Fatal]
  - Cardiac index decreased [Fatal]
  - Arrhythmia [Fatal]
  - Renal impairment [Fatal]
  - Hyperlipidaemia [Fatal]
  - Lactic acidosis [Fatal]
  - Bradycardia [Fatal]
  - Blood pressure decreased [Fatal]
  - Multi-organ failure [Fatal]
  - Cardiac arrest [Fatal]
